FAERS Safety Report 8560095-0 (Version None)
Quarter: 2012Q3

REPORT INFORMATION
  Report Type: 
  Country: None (occurrence: None)
  Receive Date: 20120723
  Receipt Date: 20120702
  Transmission Date: 20120928
  Serious: Yes (Death, Other)
  Sender: FDA-Public Use
  Company Number: EUS-2012-00500

PATIENT
  Age: 42 Year
  Sex: Male

DRUGS (1)
  1. ASPARAGINASE (UNSPECIFIED) (ASPARAGINASE) [Suspect]
     Indication: ACUTE LYMPHOCYTIC LEUKAEMIA
     Dosage: 5000 IU FOR 10 DAYS, INTRAVENOUS
     Route: 042

REACTIONS (4)
  - HYPERGLYCAEMIA [None]
  - PANCREATITIS ACUTE [None]
  - PANCREATIC PSEUDOCYST [None]
  - LEUKAEMIA RECURRENT [None]
